FAERS Safety Report 9272589 (Version 1)
Quarter: 2013Q2

REPORT INFORMATION
  Report Type: Spontaneous
  Country: JP (occurrence: JP)
  Receive Date: 20130506
  Receipt Date: 20130506
  Transmission Date: 20140414
  Serious: Yes (Life-Threatening)
  Sender: FDA-Public Use
  Company Number: JP-ASTRAZENECA-2013SE30576

PATIENT
  Age: 50 Year
  Sex: Female

DRUGS (3)
  1. PROPOFOL [Suspect]
     Indication: GENERAL ANAESTHESIA
     Route: 042
  2. REMIFENTANIL [Suspect]
     Indication: GENERAL ANAESTHESIA
     Route: 042
  3. ROCURONIUM [Suspect]
     Indication: GENERAL ANAESTHESIA
     Route: 042

REACTIONS (3)
  - Stress cardiomyopathy [Unknown]
  - Cardiac arrest [Recovering/Resolving]
  - Hypotension [Recovering/Resolving]
